FAERS Safety Report 10392652 (Version 1)
Quarter: 2014Q3

REPORT INFORMATION
  Report Type: Spontaneous
  Country: US (occurrence: US)
  Receive Date: 20140819
  Receipt Date: 20140819
  Transmission Date: 20150326
  Serious: No
  Sender: FDA-Public Use
  Company Number: US-PFIZER INC-2014228681

PATIENT
  Sex: Male

DRUGS (1)
  1. QUILLIVANT XR [Suspect]
     Active Substance: METHYLPHENIDATE HYDROCHLORIDE
     Indication: ATTENTION DEFICIT/HYPERACTIVITY DISORDER
     Dosage: 3 ML, UNK
     Route: 048
     Dates: start: 2014

REACTIONS (4)
  - Anger [Unknown]
  - Incorrect product storage [Unknown]
  - Product packaging issue [Unknown]
  - Aggression [Unknown]

NARRATIVE: CASE EVENT DATE: 2014
